FAERS Safety Report 4458190-0 (Version None)
Quarter: 2004Q3

REPORT INFORMATION
  Report Type: 
  Country: None (occurrence: None)
  Receive Date: 20040922
  Receipt Date: 20040902
  Transmission Date: 20050211
  Serious: Yes (Life-Threatening, Hospitalization)
  Sender: FDA-Public Use
  Company Number: GBS040915525

PATIENT
  Age: 72 Year
  Sex: Male

DRUGS (6)
  1. OLANZAPINE [Suspect]
     Indication: DEPRESSION
     Dosage: UNK
     Route: 065
     Dates: start: 20040712, end: 20040713
  2. TAMSULOSIN [Concomitant]
  3. DIAZEPAM [Concomitant]
  4. ATENOLOL [Concomitant]
  5. AMITRIPTYLINE HCL [Concomitant]
  6. FRUSEMIDE [Concomitant]

REACTIONS (2)
  - POLYMYOSITIS [None]
  - RENAL FAILURE [None]
